FAERS Safety Report 9106050 (Version 2)
Quarter: 2013Q2

REPORT INFORMATION
  Report Type: Spontaneous
  Country: FR (occurrence: FR)
  Receive Date: 20130220
  Receipt Date: 20130416
  Transmission Date: 20140414
  Serious: Yes (Other)
  Sender: FDA-Public Use
  Company Number: FR-BAUSCH-BL-2013-000624

PATIENT
  Age: 81 Year
  Sex: Male

DRUGS (5)
  1. YELLOX 0.9 MG/ML EYE DROPS, SOLUTION [Suspect]
     Indication: POSTOPERATIVE CARE
     Route: 047
     Dates: start: 20121205, end: 20121220
  2. CILOXAN [Suspect]
     Indication: POSTOPERATIVE CARE
     Route: 047
     Dates: start: 20121205, end: 20121220
  3. CHIBRO-CADRON [Suspect]
     Indication: POSTOPERATIVE CARE
     Route: 047
     Dates: start: 20121204, end: 201212
  4. CRESTOR [Concomitant]
     Indication: PRODUCT USED FOR UNKNOWN INDICATION
  5. PERMIXON [Concomitant]
     Indication: PRODUCT USED FOR UNKNOWN INDICATION

REACTIONS (2)
  - Cystoid macular oedema [Recovering/Resolving]
  - Visual impairment [Recovered/Resolved]
